FAERS Safety Report 20496222 (Version 2)
Quarter: 2022Q4

REPORT INFORMATION
  Report Type: Report from Study
  Country: FR (occurrence: FR)
  Receive Date: 20220221
  Receipt Date: 20221209
  Transmission Date: 20230113
  Serious: Yes (Other)
  Sender: FDA-Public Use
  Company Number: FR-GLAXOSMITHKLINE-FR2019EME102255

PATIENT

DRUGS (5)
  1. ALBUTEROL SULFATE [Suspect]
     Active Substance: ALBUTEROL SULFATE
     Indication: Product used for unknown indication
     Dosage: 2 MG, BID
     Route: 048
     Dates: start: 2015
  2. ALBUTEROL SULFATE [Suspect]
     Active Substance: ALBUTEROL SULFATE
     Dosage: 2MG/5ML
     Route: 048
     Dates: start: 20190218
  3. ALBUTEROL SULFATE [Suspect]
     Active Substance: ALBUTEROL SULFATE
     Dosage: 2MG/5ML
     Route: 048
     Dates: start: 20190523
  4. ALBUTEROL SULFATE [Suspect]
     Active Substance: ALBUTEROL SULFATE
     Dosage: 2MG/5ML
     Route: 048
     Dates: start: 20211216
  5. MESTINON [Concomitant]
     Active Substance: PYRIDOSTIGMINE BROMIDE
     Indication: Muscular weakness
     Dosage: 10 MG, TID
     Dates: start: 20150910

REACTIONS (5)
  - Myasthenia gravis [Unknown]
  - Fatigue [Unknown]
  - Incorrect dose administered [Unknown]
  - Weight increased [Unknown]
  - Dysarthria [Recovered/Resolved]
